FAERS Safety Report 4684458-9 (Version None)
Quarter: 2005Q2

REPORT INFORMATION
  Report Type: 
  Country: None (occurrence: None)
  Receive Date: 20050607
  Receipt Date: 20040226
  Transmission Date: 20051028
  Serious: Yes (Other)
  Sender: FDA-Public Use
  Company Number: PHNR2004AU00725

PATIENT
  Sex: Male

DRUGS (5)
  1. NEORAL [Suspect]
     Indication: ORGAN TRANSPLANT
     Dates: start: 20010801
  2. FLUVOXAMINE MALEATE [Concomitant]
  3. FELODUR [Concomitant]
  4. LIPITOR [Concomitant]
  5. DIAMICRON [Concomitant]

REACTIONS (10)
  - ACCIDENT AT WORK [None]
  - AGITATION [None]
  - ANXIETY [None]
  - BRAIN DAMAGE [None]
  - DENTAL TREATMENT [None]
  - DEPRESSION [None]
  - EMOTIONAL DISTRESS [None]
  - GINGIVAL HYPERPLASIA [None]
  - POST-TRAUMATIC STRESS DISORDER [None]
  - VISUAL DISTURBANCE [None]
